FAERS Safety Report 4491237-4 (Version None)
Quarter: 2004Q4

REPORT INFORMATION
  Report Type: 
  Country: None (occurrence: None)
  Receive Date: 20041101
  Receipt Date: 20041101
  Transmission Date: 20050328
  Serious: Yes (Hospitalization)
  Sender: FDA-Public Use
  Company Number: None

PATIENT
  Age: 74 Year
  Sex: Female
  Weight: 235.8 kg

DRUGS (2)
  1. GABAPENTIN [Suspect]
     Indication: CONVULSION
     Dosage: 900 MG /DAY
     Dates: start: 20040830, end: 20040911
  2. GABAPENTIN [Suspect]
     Indication: TENSION HEADACHE
     Dosage: 900 MG /DAY
     Dates: start: 20040830, end: 20040911

REACTIONS (1)
  - GENERALISED OEDEMA [None]
